FAERS Safety Report 19402794 (Version 2)
Quarter: 2021Q3

REPORT INFORMATION
  Report Type: Spontaneous
  Country: IN (occurrence: IN)
  Receive Date: 20210610
  Receipt Date: 20210701
  Transmission Date: 20211014
  Serious: Yes (Other)
  Sender: FDA-Public Use
  Company Number: IN-PFIZER INC-2021635803

PATIENT
  Age: 42 Year
  Sex: Female

DRUGS (3)
  1. METHYLPREDNISOLONE. [Suspect]
     Active Substance: METHYLPREDNISOLONE
     Indication: COVID-19
     Dosage: 16 MG, 1X/DAY
     Route: 048
  2. DEXAMETHASONE. [Suspect]
     Active Substance: DEXAMETHASONE
     Indication: COVID-19
     Dosage: 6 MG, 1X/DAY
     Route: 048
  3. BUDESONIDE/FORMOTEROL FUMARATE DIHYDRATE [Suspect]
     Active Substance: BUDESONIDE\FORMOTEROL FUMARATE DIHYDRATE
     Indication: COVID-19
     Dosage: 6 MCG AND 9200 MCG, TWICE DAILY
     Route: 055

REACTIONS (4)
  - Macular detachment [Recovering/Resolving]
  - Detachment of retinal pigment epithelium [Recovered/Resolved]
  - Chorioretinopathy [Recovering/Resolving]
  - Off label use [Unknown]
